FAERS Safety Report 11293091 (Version 1)
Quarter: 2015Q3

REPORT INFORMATION
  Report Type: Spontaneous
  Country: CN (occurrence: CN)
  Receive Date: 20150722
  Receipt Date: 20150722
  Transmission Date: 20151125
  Serious: Yes (Death, Other)
  Sender: FDA-Public Use
  Company Number: CN-BAXTER-2015BAX038737

PATIENT
  Age: 49 Year
  Sex: Male

DRUGS (7)
  1. ENDOSTAR [Suspect]
     Active Substance: ENDOSTATIN
     Indication: PLEURAL SARCOMA
     Dosage: 4 CYCLES ON DAYS 1-14
     Route: 041
  2. HOLOXAN [Suspect]
     Active Substance: IFOSFAMIDE
     Indication: SYNOVIAL SARCOMA
     Dosage: 4 CYCLES 1.0 G/M2 ON DAYS 1-6
     Route: 041
     Dates: start: 2011, end: 2011
  3. PEMETREXED [Suspect]
     Active Substance: PEMETREXED
     Indication: NEOPLASM PROGRESSION
     Dosage: 3 CYCLES ON DAYS 1-8
     Route: 041
  4. HOLOXAN [Suspect]
     Active Substance: IFOSFAMIDE
     Indication: PLEURAL SARCOMA
  5. ENDOSTAR [Suspect]
     Active Substance: ENDOSTATIN
     Indication: SYNOVIAL SARCOMA
     Dosage: 4 CYCLES ON DAYS 1-14
     Route: 041
     Dates: start: 2011, end: 2011
  6. ENDOSTAR [Suspect]
     Active Substance: ENDOSTATIN
     Indication: NEOPLASM PROGRESSION
  7. SUNITINIB [Suspect]
     Active Substance: SUNITINIB
     Indication: CHEMOTHERAPY
     Route: 048

REACTIONS (8)
  - Respiratory failure [Fatal]
  - Vomiting [Unknown]
  - Circulatory collapse [Fatal]
  - Neoplasm progression [Not Recovered/Not Resolved]
  - Hypertension [Unknown]
  - Nausea [Unknown]
  - Dizziness [Unknown]
  - Neutropenia [Unknown]
